FAERS Safety Report 6516391-1 (Version None)
Quarter: 2009Q4

REPORT INFORMATION
  Report Type: 
  Country: None (occurrence: None)
  Receive Date: 20091223
  Receipt Date: 20091221
  Transmission Date: 20100525
  Serious: Yes (Death, Hospitalization)
  Sender: FDA-Public Use
  Company Number: B0595413A

PATIENT
  Age: 75 Year
  Sex: Male

DRUGS (8)
  1. LAMICTAL [Suspect]
     Indication: TONIC CLONIC MOVEMENTS
     Dosage: 1TAB PER DAY
     Route: 048
     Dates: start: 20090409, end: 20091009
  2. NEXIUM [Concomitant]
     Dosage: 40MG PER DAY
     Route: 048
     Dates: start: 20090321
  3. TIAPRIDAL [Concomitant]
     Indication: TONIC CLONIC MOVEMENTS
     Route: 048
     Dates: start: 20090306
  4. ASPEGIC 1000 [Concomitant]
     Dosage: 100MG PER DAY
  5. FORLAX [Concomitant]
     Dosage: 2UNIT PER DAY
  6. SERESTA [Concomitant]
     Dosage: 10MG PER DAY
  7. MEMANTINE [Concomitant]
     Dosage: 10MG TWICE PER DAY
  8. DAFALGAN [Concomitant]

REACTIONS (5)
  - EOSINOPHILIA [None]
  - FATIGUE [None]
  - HYPERSENSITIVITY [None]
  - INTERSTITIAL LUNG DISEASE [None]
  - OXYGEN SUPPLEMENTATION [None]
